FAERS Safety Report 17581725 (Version 1)
Quarter: 2020Q1

REPORT INFORMATION
  Report Type: Spontaneous
  Country: US (occurrence: US)
  Receive Date: 20200324
  Receipt Date: 20200324
  Transmission Date: 20200409
  Serious: Yes (Other)
  Sender: FDA-Public Use
  Company Number: None

PATIENT
  Age: 35 Year
  Sex: Male
  Weight: 130.05 kg

DRUGS (1)
  1. DEPAKOTE ER [Suspect]
     Active Substance: DIVALPROEX SODIUM
     Indication: BIPOLAR I DISORDER
     Route: 048

REACTIONS (5)
  - Suspected product quality issue [None]
  - Anticonvulsant drug level abnormal [None]
  - Intellectual disability [None]
  - Anticonvulsant drug level below therapeutic [None]
  - Condition aggravated [None]

NARRATIVE: CASE EVENT DATE: 20200104
